FAERS Safety Report 7964919-7 (Version None)
Quarter: 2011Q4

REPORT INFORMATION
  Report Type: 
  Country: None (occurrence: None)
  Receive Date: 20111208
  Receipt Date: 20111124
  Transmission Date: 20120403
  Serious: Yes (Death, Hospitalization, Other)
  Sender: FDA-Public Use
  Company Number: JP-ROCHE-706824

PATIENT
  Sex: Female
  Weight: 47 kg

DRUGS (15)
  1. AVASTIN [Suspect]
     Indication: LUNG ADENOCARCINOMA METASTATIC
     Route: 041
  2. GOSHA-JINKI-GAN [Concomitant]
     Dosage: GENERIC REPORTED AS GOSHA-JINKI-GAN, FORM GRANULATED POWDER
     Route: 048
     Dates: start: 20100427, end: 20100525
  3. CEFTRIAXONE [Suspect]
     Indication: PNEUMONIA
     Route: 042
     Dates: start: 20100518, end: 20100518
  4. NEUTROGIN [Suspect]
     Indication: NEUTROPHIL COUNT DECREASED
     Route: 042
     Dates: start: 20100518, end: 20100518
  5. PROTECADIN [Concomitant]
     Route: 048
     Dates: start: 20100318, end: 20100525
  6. AMLODIPINE [Concomitant]
     Dosage: DOSAGE IS UNCERTAIN
     Route: 048
  7. CEFTRIAXONE [Suspect]
     Route: 042
     Dates: start: 20100520, end: 20100520
  8. GARENOXACIN MESYLATE [Suspect]
     Indication: PNEUMONIA
     Dosage: GENERIC REPORTED AS GARENOXACIN MESILATE HYDRATE
     Route: 048
     Dates: start: 20100518, end: 20100521
  9. METOCLOPRAMIDE [Concomitant]
     Dosage: DOSAGE IS UNCERTAIN, DOSEFORM: UNCERTAINITY
  10. ENALAPRIL MALEATE [Concomitant]
     Dosage: DOSAGE IS UNCERTAIN
     Route: 048
  11. CODEINE PHOSPHATE [Concomitant]
     Dosage: POWDERED MEDICINE, DOSAGE IS UNCERTAIN
     Route: 048
  12. LOXONIN [Concomitant]
     Dosage: DOSAGE IS UNCERTAIN, DOSEFORM UNCERTAINITY
  13. AVASTIN [Suspect]
     Dosage: THREE COURSES
     Route: 041
     Dates: start: 20100323, end: 20100506
  14. RESTAMIN [Concomitant]
     Dosage: DOSAGE IS UNCERTAIN
     Route: 048
  15. LENDORMIN [Concomitant]
     Dosage: LENDORMIN D, DOSAGE IS UNCERTAIN
     Route: 048

REACTIONS (11)
  - MENINGISM [None]
  - NEOPLASM MALIGNANT [None]
  - HYPERTENSION [None]
  - CEREBRAL HAEMATOMA [None]
  - COUGH [None]
  - DISEASE PROGRESSION [None]
  - PNEUMONIA [None]
  - CEREBRAL HAEMORRHAGE [None]
  - SUBCUTANEOUS HAEMATOMA [None]
  - DECREASED APPETITE [None]
  - NEUTROPHIL COUNT DECREASED [None]
